FAERS Safety Report 5684380-5 (Version None)
Quarter: 2008Q1

REPORT INFORMATION
  Report Type: 
  Country: None (occurrence: None)
  Receive Date: 20080327
  Receipt Date: 20080327
  Transmission Date: 20080703
  Serious: No
  Sender: FDA-Public Use
  Company Number: None

PATIENT
  Age: 48 Year
  Sex: Male
  Weight: 176.9028 kg

DRUGS (1)
  1. FLOMAX [Suspect]
     Indication: MICTURITION URGENCY
     Dosage: ONE HS PO; ONE NIGHT ONLY
     Route: 048

REACTIONS (3)
  - HAEMATOMA [None]
  - POST PROCEDURAL COMPLICATION [None]
  - SHOCK [None]
